FAERS Safety Report 12010369 (Version 1)
Quarter: 2016Q1

REPORT INFORMATION
  Report Type: Spontaneous
  Country: US (occurrence: US)
  Receive Date: 20160205
  Receipt Date: 20160205
  Transmission Date: 20160526
  Serious: No
  Sender: FDA-Public Use
  Company Number: US-DUCHESNAY INC.-1047375

PATIENT
  Sex: Female

DRUGS (2)
  1. DICLEGIS [Suspect]
     Active Substance: DOXYLAMINE SUCCINATE\PYRIDOXINE HYDROCHLORIDE
  2. PRENATAL VITAMINS PLUS [Concomitant]
     Active Substance: .ALPHA.-TOCOPHEROL ACETATE, DL-\ASCORBIC ACID\CALCIUM\CHOLECALCIFEROL\COPPER\CYANOCOBALAMIN\FOLIC ACID\IRON\NIACIN\PYRIDOXINE\RIBOFLAVIN\THIAMINE MONONITRATE\VITAMIN A\ZINC

REACTIONS (3)
  - Dizziness [Unknown]
  - Vision blurred [Not Recovered/Not Resolved]
  - Somnolence [Recovering/Resolving]

NARRATIVE: CASE EVENT DATE: 20160203
